FAERS Safety Report 22260974 (Version 2)
Quarter: 2023Q2

REPORT INFORMATION
  Report Type: Spontaneous
  Country: US (occurrence: US)
  Receive Date: 20230427
  Receipt Date: 20230501
  Transmission Date: 20230721
  Serious: No
  Sender: FDA-Public Use
  Company Number: US-SUNOVION-2023SUN000574AA

PATIENT
  Sex: Male

DRUGS (1)
  1. LATUDA [Suspect]
     Active Substance: LURASIDONE HYDROCHLORIDE
     Dosage: 20 MG
     Route: 048

REACTIONS (6)
  - Malaise [Unknown]
  - Irritability [Unknown]
  - Headache [Unknown]
  - Panic attack [Unknown]
  - Dizziness [Unknown]
  - Therapy interrupted [Unknown]
